FAERS Safety Report 9220492 (Version 1)
Quarter: 2013Q2

REPORT INFORMATION
  Report Type: Spontaneous
  Country: CA (occurrence: CA)
  Receive Date: 20130409
  Receipt Date: 20130409
  Transmission Date: 20140414
  Serious: Yes (Death, Hospitalization)
  Sender: FDA-Public Use
  Company Number: CA-CELGENEUS-028-21880-12040997

PATIENT
  Age: 82 Year
  Sex: Male

DRUGS (19)
  1. REVLIMID [Suspect]
     Indication: PLASMA CELL MYELOMA
     Route: 048
  2. ELOTUZUMAB [Suspect]
     Indication: PLASMA CELL MYELOMA
     Route: 065
  3. DEXAMETHASONE [Suspect]
     Indication: PLASMA CELL MYELOMA
     Route: 065
     Dates: start: 20120328, end: 20120401
  4. DEXAMETHASONE [Suspect]
     Indication: ADVERSE EVENT
  5. VALACYCLOVIR [Concomitant]
     Indication: PRODUCT USED FOR UNKNOWN INDICATION
     Route: 065
     Dates: start: 20120123, end: 20120401
  6. PLAVIX [Concomitant]
     Indication: PRODUCT USED FOR UNKNOWN INDICATION
     Route: 065
     Dates: start: 20120124, end: 20120327
  7. ATENOLOL [Concomitant]
     Indication: PRODUCT USED FOR UNKNOWN INDICATION
     Route: 065
     Dates: start: 20120123, end: 20120401
  8. RAMIPRIL [Concomitant]
     Indication: PRODUCT USED FOR UNKNOWN INDICATION
     Route: 065
     Dates: start: 20120123, end: 20120401
  9. NORMAL SALINE [Concomitant]
     Indication: ADVERSE EVENT
     Route: 065
     Dates: start: 20120327, end: 20120401
  10. ALLOPURINOL [Concomitant]
     Indication: ADVERSE EVENT
     Route: 065
     Dates: start: 20120327, end: 20120331
  11. CLONIDINE [Concomitant]
     Indication: ADVERSE EVENT
     Route: 065
     Dates: start: 20120401, end: 20120401
  12. BENADRYL [Concomitant]
     Indication: ADVERSE EVENT
     Route: 065
     Dates: start: 20120401, end: 20120401
  13. VITAMIN K [Concomitant]
     Indication: ADVERSE EVENT
     Route: 065
     Dates: start: 20120401, end: 20120401
  14. LASIX [Concomitant]
     Indication: ADVERSE EVENT
     Route: 065
     Dates: start: 20120401, end: 20120401
  15. VERSED [Concomitant]
     Indication: ADVERSE EVENT
     Route: 065
     Dates: start: 20120401, end: 20120401
  16. SCOPOLAMINE [Concomitant]
     Indication: ADVERSE EVENT
     Route: 065
     Dates: start: 20120401, end: 20120401
  17. NYSTATIN [Concomitant]
     Indication: PRODUCT USED FOR UNKNOWN INDICATION
     Route: 065
     Dates: start: 20120329, end: 20120401
  18. INSULIN [Concomitant]
     Indication: PRODUCT USED FOR UNKNOWN INDICATION
     Route: 065
     Dates: start: 20120327, end: 20120331
  19. CALCITONIN [Concomitant]
     Indication: PRODUCT USED FOR UNKNOWN INDICATION
     Route: 065
     Dates: start: 20120327, end: 20120331

REACTIONS (2)
  - Subdural haematoma [Fatal]
  - Dehydration [Not Recovered/Not Resolved]
